FAERS Safety Report 25808487 (Version 1)
Quarter: 2025Q3

REPORT INFORMATION
  Report Type: Spontaneous
  Country: US (occurrence: None)
  Receive Date: 20250915
  Receipt Date: 20250915
  Transmission Date: 20251021
  Serious: Yes (Other)
  Sender: FDA-CTU
  Company Number: None

PATIENT
  Age: 70 Year
  Sex: Female

DRUGS (2)
  1. DALBAVANCIN [Suspect]
     Active Substance: DALBAVANCIN
     Route: 041
  2. DALBAVANCIN [Concomitant]
     Active Substance: DALBAVANCIN
     Dates: start: 20250822, end: 20250902

REACTIONS (10)
  - Infusion related reaction [None]
  - Pruritus [None]
  - Nausea [None]
  - Back pain [None]
  - Neck pain [None]
  - Hyperhidrosis [None]
  - Hyperventilation [None]
  - Retching [None]
  - Diarrhoea [None]
  - Respiratory tract congestion [None]

NARRATIVE: CASE EVENT DATE: 20250902
